FAERS Safety Report 6291846-6 (Version None)
Quarter: 2009Q3

REPORT INFORMATION
  Report Type: 
  Country: None (occurrence: None)
  Receive Date: 20090730
  Receipt Date: 20090722
  Transmission Date: 20100115
  Serious: Yes (Life-Threatening, Other)
  Sender: FDA-Public Use
  Company Number: CA-MERCK-0907CAN00122

PATIENT
  Age: 36 Year
  Sex: Male
  Weight: 95 kg

DRUGS (3)
  1. FLUTICASONE PROPIONATE [Concomitant]
     Route: 065
  2. SINGULAIR [Suspect]
     Route: 048
  3. FLUTICASONE PROPIONATE [Concomitant]

REACTIONS (7)
  - AGITATION [None]
  - ANXIETY [None]
  - BIPOLAR I DISORDER [None]
  - DISTURBANCE IN ATTENTION [None]
  - RAPID EYE MOVEMENTS SLEEP ABNORMAL [None]
  - SLEEP DISORDER [None]
  - SUICIDAL IDEATION [None]
